FAERS Safety Report 8487340-4 (Version None)
Quarter: 2012Q3

REPORT INFORMATION
  Report Type: 
  Country: None (occurrence: None)
  Receive Date: 20120705
  Receipt Date: 20120620
  Transmission Date: 20120928
  Serious: Yes (Disabling, Other)
  Sender: FDA-Public Use
  Company Number: FR-AMGEN-FRASP2011023786

PATIENT
  Age: 62 Year
  Sex: Male
  Weight: 66 kg

DRUGS (1)
  1. ENBREL [Suspect]
     Indication: PSORIASIS
     Dosage: 25 MG, 2X/WEEK
     Route: 058
     Dates: start: 20060411, end: 20111026

REACTIONS (6)
  - MUSCULAR WEAKNESS [None]
  - MYOPATHY [None]
  - FALL [None]
  - MOBILITY DECREASED [None]
  - MUSCLE ATROPHY [None]
  - DYSSTASIA [None]
